FAERS Safety Report 9198330 (Version 1)
Quarter: 2013Q1

REPORT INFORMATION
  Report Type: Spontaneous
  Country: US (occurrence: None)
  Receive Date: 20130327
  Receipt Date: 20130327
  Transmission Date: 20140127
  Serious: Yes (Other)
  Sender: FDA-Public Use
  Company Number: None

PATIENT
  Age: 78 Year
  Sex: Female
  Weight: 69.85 kg

DRUGS (2)
  1. LORAZEPAM 0.5 MG WATSON LAB GENERIC [Suspect]
     Indication: STRESS
     Route: 048
     Dates: start: 20130103
  2. LORAZEPAM 0.5 MG WATSON LAB GENERIC [Suspect]
     Indication: POOR QUALITY SLEEP
     Route: 048
     Dates: start: 20130103

REACTIONS (13)
  - Panic attack [None]
  - Dizziness [None]
  - Balance disorder [None]
  - Coordination abnormal [None]
  - Asthenia [None]
  - Gastric disorder [None]
  - Abdominal distension [None]
  - Flatulence [None]
  - Vision blurred [None]
  - Muscle spasms [None]
  - Tremor [None]
  - Anxiety [None]
  - Drug withdrawal syndrome [None]
